FAERS Safety Report 9066326 (Version 3)
Quarter: 2013Q1

REPORT INFORMATION
  Report Type: Spontaneous
  Country: US (occurrence: US)
  Receive Date: 20130207
  Receipt Date: 20130318
  Transmission Date: 20140127
  Serious: Yes (Hospitalization)
  Sender: FDA-Public Use
  Company Number: US-PFIZER INC-2013029750

PATIENT
  Age: 81 Year
  Sex: Male
  Weight: 79.37 kg

DRUGS (10)
  1. SUTENT [Suspect]
     Indication: NEUROENDOCRINE CARCINOMA
     Dosage: 25 MG, 1X/DAY
     Route: 048
     Dates: start: 20121008, end: 20130103
  2. SUTENT [Suspect]
     Indication: PANCREATIC CARCINOMA
     Dosage: 50 MG, 1X/DAY
     Route: 048
     Dates: start: 20130104, end: 20130119
  3. SUTENT [Suspect]
     Indication: PANCREATIC CARCINOMA
     Dosage: 50 MG, 1X/DAY
     Route: 048
     Dates: start: 201301, end: 201301
  4. SUTENT [Suspect]
     Dosage: 50 MG, UNK
  5. HYDROMORPHONE [Concomitant]
     Indication: PAIN
     Dosage: 8 MG, 1 TO 2 TABS AS NEEDED, EVERY 4-6 HOURS
  6. ZOCOR [Concomitant]
     Dosage: UNK
  7. AMLODIPINE [Concomitant]
     Dosage: 10 MG, UNK
  8. LORAZEPAM [Concomitant]
     Indication: SLEEP DISORDER
     Dosage: UNK, AS NEEDED
  9. ASPIRIN [Concomitant]
     Dosage: 325 MG, UNK
  10. NEXIUM [Concomitant]
     Indication: GASTROOESOPHAGEAL REFLUX DISEASE
     Dosage: UNK

REACTIONS (10)
  - Diarrhoea [Recovering/Resolving]
  - Colitis [Not Recovered/Not Resolved]
  - Rash [Unknown]
  - Dysgeusia [Unknown]
  - Decreased appetite [Unknown]
  - Tenderness [Unknown]
  - Glossodynia [Unknown]
  - Oral pain [Unknown]
  - Fatigue [Unknown]
  - Hypotension [Unknown]
